FAERS Safety Report 10238803 (Version 3)
Quarter: 2016Q2

REPORT INFORMATION
  Report Type: Report from Study
  Country: US (occurrence: US)
  Receive Date: 20140612
  Receipt Date: 20160516
  Transmission Date: 20160815
  Serious: Yes (Death, Other)
  Sender: FDA-Public Use
  Company Number: ADR-2014-00993

PATIENT
  Age: 52 Year
  Sex: Female

DRUGS (12)
  1. DILAUDID [Suspect]
     Active Substance: HYDROMORPHONE HYDROCHLORIDE
     Dosage: 2.5035 MG/DAY
     Route: 037
  2. DILAUDID [Suspect]
     Active Substance: HYDROMORPHONE HYDROCHLORIDE
     Dosage: 1.7519 MG/DAY
     Route: 037
     Dates: start: 20140418
  3. CLONIDINE. [Suspect]
     Active Substance: CLONIDINE
     Dosage: 109.49 MCG/DAY
     Route: 037
     Dates: start: 20140418
  4. BUPIVACAINE. [Suspect]
     Active Substance: BUPIVACAINE
     Dosage: 15.002MG/DAY
     Route: 037
     Dates: start: 20140602
  5. BUPIVACAINE. [Suspect]
     Active Substance: BUPIVACAINE
     Dosage: 18.776 MG/DAY
     Route: 037
  6. BUPIVACAINE. [Suspect]
     Active Substance: BUPIVACAINE
     Dosage: 13.139 MG/DAY
     Route: 037
     Dates: start: 20140418
  7. CLONIDINE. [Suspect]
     Active Substance: CLONIDINE
     Dosage: 156.47 MCG/DAY
     Route: 037
  8. DILAUDID [Suspect]
     Active Substance: HYDROMORPHONE HYDROCHLORIDE
     Dosage: 2.0002MG/DAY
     Route: 037
     Dates: start: 20140602
  9. COMPOUNDED BACLOFEN [Suspect]
     Active Substance: BACLOFEN
     Dosage: 187.776 MCG/DAY
     Route: 037
  10. COMPOUNDED BACLOFEN [Suspect]
     Active Substance: BACLOFEN
     Dosage: 75.01MCG/DAY
     Route: 037
     Dates: start: 20140602
  11. COMPOUNDED BACLOFEN [Suspect]
     Active Substance: BACLOFEN
     Dosage: 131.39 MCG/DAY
     Route: 037
     Dates: start: 20140418
  12. CLONIDINE. [Suspect]
     Active Substance: CLONIDINE
     Dosage: 75.01MCG/DAY
     Route: 037
     Dates: start: 20140602

REACTIONS (7)
  - Adverse drug reaction [Not Recovered/Not Resolved]
  - Non-small cell lung cancer metastatic [Fatal]
  - Sedation [Not Recovered/Not Resolved]
  - Dizziness [Not Recovered/Not Resolved]
  - Nausea [Not Recovered/Not Resolved]
  - Dyspnoea [Not Recovered/Not Resolved]
  - Asthenia [Not Recovered/Not Resolved]

NARRATIVE: CASE EVENT DATE: 20140418
